FAERS Safety Report 4187090 (Version 2)
Quarter: 2020Q3

REPORT INFORMATION
  Report Type: Spontaneous
  Country: JP (occurrence: JP)
  Receive Date: 20040809
  Receipt Date: 20041201
  Transmission Date: 20201105
  Serious: Yes (Death)
  Sender: FDA-Public Use
  Company Number: 200412497JP

PATIENT
  Age: 70 Year
  Sex: Male
  Weight: 39.7 kg

DRUGS (12)
  1. ATARAX [Suspect]
     Active Substance: HYDROXYZINE HYDROCHLORIDE
     Route: 048
     Dates: end: 20040729
  2. DIOVAN [Suspect]
     Active Substance: VALSARTAN
     Route: 048
     Dates: start: 20040612, end: 20040712
  3. UNSPECIFIED INGREDIENT [Concomitant]
     Active Substance: UNSPECIFIED INGREDIENT
  4. NORUCHOLIC ACID. [Suspect]
     Active Substance: NORUCHOLIC ACID
     Route: 048
     Dates: end: 20040712
  5. BROTIZOLAM [Suspect]
     Active Substance: BROTIZOLAM
     Route: 048
     Dates: end: 20040729
  6. LASIX [Suspect]
     Active Substance: FUROSEMIDE
     Route: 048
     Dates: end: 20040712
  7. ROCALTROL [Suspect]
     Active Substance: CALCITRIOL
     Route: 048
     Dates: end: 20040712
  8. BIOFERMIN [Suspect]
     Active Substance: DIETARY SUPPLEMENT\PROBIOTICS
     Route: 048
     Dates: end: 20040712
  9. ALBUMIN [Concomitant]
     Active Substance: ALBUMIN HUMAN
  10. MOSAPRIDE [Suspect]
     Active Substance: MOSAPRIDE
     Dosage: DOSE: 3 TABLETS/DAY
     Route: 048
     Dates: end: 20040712
  11. FURSULTIAMINE [Suspect]
     Active Substance: FURSULTIAMINE
     Dosage: DOSE: 3 TABLETS
     Route: 048
     Dates: start: 20040612, end: 20040714
  12. AMMONIUM GLYCYRRHIZATE [Suspect]
     Active Substance: AMMONIUM GLYCYRRHIZATE
     Dosage: DOSE: 6 TABLETS/DAY
     Route: 048
     Dates: end: 20040712

REACTIONS (12)
  - Skin abrasion [None]
  - Erythema [None]
  - General physical health deterioration [None]
  - Sepsis [None]
  - Platelet count decreased [None]
  - Stevens-Johnson syndrome [None]
  - Pruritus [None]
  - Haematocrit decreased [None]
  - Blood urea increased [None]
  - Hypophagia [None]
  - White blood cell count increased [None]
  - Blood albumin decreased [None]

NARRATIVE: CASE EVENT DATE: 20040729
